FAERS Safety Report 17358748 (Version 1)
Quarter: 2020Q1

REPORT INFORMATION
  Report Type: Spontaneous
  Country: US (occurrence: US)
  Receive Date: 20200201
  Receipt Date: 20200201
  Transmission Date: 20200409
  Serious: No
  Sender: FDA-Public Use
  Company Number: US-LANNETT COMPANY, INC.-US-2019LAN000212

PATIENT

DRUGS (3)
  1. LANORINAL [Suspect]
     Active Substance: ASPIRIN\BUTALBITAL\CAFFEINE
     Indication: MIGRAINE
     Dosage: UNK
     Route: 048
     Dates: start: 2016
  2. LANORINAL [Suspect]
     Active Substance: ASPIRIN\BUTALBITAL\CAFFEINE
     Dosage: 1 DF, TID
     Route: 048
     Dates: start: 20190225, end: 20190225
  3. LANORINAL [Suspect]
     Active Substance: ASPIRIN\BUTALBITAL\CAFFEINE
     Dosage: UNK
     Route: 048
     Dates: start: 20190222, end: 20190224

REACTIONS (8)
  - Abdominal discomfort [Unknown]
  - Malaise [Unknown]
  - Heart rate increased [Unknown]
  - Heart rate irregular [Unknown]
  - Nausea [Unknown]
  - Pain [Unknown]
  - Palpitations [Unknown]
  - Headache [Unknown]

NARRATIVE: CASE EVENT DATE: 20190222
